FAERS Safety Report 21795092 (Version 1)
Quarter: 2022Q4

REPORT INFORMATION
  Report Type: Report from Study
  Country: CN (occurrence: None)
  Receive Date: 20221229
  Receipt Date: 20221229
  Transmission Date: 20230113
  Serious: Yes (Life-Threatening)
  Sender: FDA-Public Use
  Company Number: 2022A353728

PATIENT
  Age: 67 Year
  Sex: Male
  Weight: 50 kg

DRUGS (10)
  1. INVESTIGATIONAL PRODUCT [Suspect]
     Active Substance: INVESTIGATIONAL PRODUCT
     Indication: Non-small cell lung cancer
     Dosage: 6 MG/KG [ONCE EVERY 2 WEEKS]
     Route: 042
     Dates: start: 20220908, end: 20220908
  2. INVESTIGATIONAL PRODUCT [Suspect]
     Active Substance: INVESTIGATIONAL PRODUCT
     Indication: Non-small cell lung cancer
     Dosage: 6 MG/KG [ONCE EVERY 2 WEEKS]
     Route: 042
     Dates: start: 20220922, end: 20220922
  3. INVESTIGATIONAL PRODUCT [Suspect]
     Active Substance: INVESTIGATIONAL PRODUCT
     Indication: Non-small cell lung cancer
     Dosage: 6 MG/KG [ONCE EVERY 2 WEEKS]
     Route: 042
     Dates: start: 20221008, end: 20221008
  4. OSIMERTINIB [Suspect]
     Active Substance: OSIMERTINIB
     Indication: Non-small cell lung cancer
     Route: 048
     Dates: start: 20220825, end: 20220922
  5. OSIMERTINIB [Suspect]
     Active Substance: OSIMERTINIB
     Indication: Non-small cell lung cancer
     Route: 048
     Dates: start: 20220923, end: 20221013
  6. MINOCYCLINE HYDROCHLORIDE CAPSULES [Concomitant]
     Indication: Rash
     Dosage: 100 MG/BID
     Route: 065
  7. SODIUM, POTASSIUM, MAGNESIUM AND CALCIUM GLUCOSE INJECTION [Concomitant]
     Indication: Decreased appetite
     Dosage: 500 ML/QD
     Route: 065
  8. POTASSIUM CHLORIDE [Concomitant]
     Active Substance: POTASSIUM CHLORIDE
     Indication: Decreased appetite
     Dosage: 1 G/QD
     Route: 065
  9. COMPOUND AMINO ACID 18AA-? INJECTION [Concomitant]
     Indication: Decreased appetite
     Dosage: 250 ML/QD
     Route: 065
  10. ALBUMIN HUMAN [Concomitant]
     Active Substance: ALBUMIN HUMAN
     Indication: Hypoproteinaemia
     Dosage: 10 G/QD
     Route: 065
     Dates: start: 2022

REACTIONS (1)
  - Platelet count decreased [Not Recovered/Not Resolved]

NARRATIVE: CASE EVENT DATE: 20220907
